FAERS Safety Report 9171104 (Version 1)
Quarter: 2013Q1

REPORT INFORMATION
  Report Type: Report from Study
  Country: CA (occurrence: CA)
  Receive Date: 20130319
  Receipt Date: 20130319
  Transmission Date: 20140127
  Serious: Yes (Hospitalization)
  Sender: FDA-Public Use
  Company Number: CA-JNJFOC-20130306174

PATIENT
  Age: 54 Year
  Sex: Male
  Weight: 77 kg

DRUGS (3)
  1. REMICADE [Suspect]
     Indication: CROHN^S DISEASE
     Dosage: 2ND INDUCTION DOSE
     Route: 042
     Dates: start: 20130124
  2. VITAMIN B12 [Concomitant]
     Dosage: DURATION FOR 6 MONTHS
     Route: 065
  3. IMURAN [Concomitant]
     Route: 065

REACTIONS (1)
  - Hernia repair [Unknown]
